FAERS Safety Report 15850167 (Version 1)
Quarter: 2019Q1

REPORT INFORMATION
  Report Type: Spontaneous
  Country: US (occurrence: US)
  Receive Date: 20190121
  Receipt Date: 20190121
  Transmission Date: 20190417
  Serious: No
  Sender: FDA-Public Use
  Company Number: US-TEVA-2019-US-1002393

PATIENT
  Sex: Female

DRUGS (1)
  1. PROPRANOLOL HYDROCHLORIDE TEVA [Suspect]
     Active Substance: PROPRANOLOL HYDROCHLORIDE
     Route: 065

REACTIONS (1)
  - Drug ineffective [Unknown]
